FAERS Safety Report 5087250-9 (Version None)
Quarter: 2006Q3

REPORT INFORMATION
  Report Type: 
  Country: None (occurrence: None)
  Receive Date: 20060821
  Receipt Date: 20060809
  Transmission Date: 20061208
  Serious: Yes (Hospitalization, Disabling)
  Sender: FDA-Public Use
  Company Number: 111949ISR

PATIENT
  Age: 42 Year
  Sex: Female

DRUGS (2)
  1. TRIMETHOPRIM [Suspect]
     Dosage: ORAL
     Route: 048
     Dates: start: 20060807
  2. OXCARBAZEPINE [Concomitant]

REACTIONS (5)
  - ANAPHYLACTIC SHOCK [None]
  - CONVULSION [None]
  - EPILEPSY [None]
  - HYPOXIC ENCEPHALOPATHY [None]
  - LOSS OF CONSCIOUSNESS [None]
